FAERS Safety Report 12314645 (Version 3)
Quarter: 2016Q2

REPORT INFORMATION
  Report Type: Spontaneous
  Country: US (occurrence: US)
  Receive Date: 20160428
  Receipt Date: 20160627
  Transmission Date: 20160815
  Serious: Yes (Life-Threatening, Hospitalization, Other)
  Sender: FDA-Public Use
  Company Number: US-PFIZER INC-2016231512

PATIENT
  Age: 8 Year
  Sex: Male

DRUGS (2)
  1. VINCRISTINE SULFATE. [Suspect]
     Active Substance: VINCRISTINE SULFATE
     Dosage: UNK, CYCLIC (ON DAY 1)
  2. IRINOTECAN HCL [Suspect]
     Active Substance: IRINOTECAN HYDROCHLORIDE
     Indication: ALVEOLAR RHABDOMYOSARCOMA
     Dosage: UNK, CYCLIC (ON DAY 1 AND 2)

REACTIONS (5)
  - Product use issue [Unknown]
  - Circulatory collapse [Recovered/Resolved]
  - Acute respiratory failure [Recovered/Resolved]
  - Tumour lysis syndrome [Recovered/Resolved]
  - Pulmonary oedema [Recovered/Resolved]
